FAERS Safety Report 18401049 (Version 1)
Quarter: 2020Q4

REPORT INFORMATION
  Report Type: Report from Study
  Country: None (occurrence: US)
  Receive Date: 20201020
  Receipt Date: 20201020
  Transmission Date: 20210114
  Serious: Yes (Other)
  Sender: FDA-Public Use
  Company Number: US-ABBVIE-20K-163-3613528-00

PATIENT
  Sex: Male

DRUGS (1)
  1. IMBRUVICA [Suspect]
     Active Substance: IBRUTINIB
     Indication: CHRONIC LYMPHOCYTIC LEUKAEMIA
     Route: 048
     Dates: start: 20200118

REACTIONS (5)
  - Atrial fibrillation [Unknown]
  - White blood cell count abnormal [Unknown]
  - Weight increased [Unknown]
  - Surgery [Unknown]
  - Onychoclasis [Unknown]

NARRATIVE: CASE EVENT DATE: 2020
